FAERS Safety Report 9735526 (Version 1)
Quarter: 2013Q4

REPORT INFORMATION
  Report Type: Spontaneous
  Country: US (occurrence: US)
  Receive Date: 20131206
  Receipt Date: 20131206
  Transmission Date: 20140711
  Serious: No
  Sender: FDA-Public Use
  Company Number: US-GILEAD-2009-0023454

PATIENT
  Sex: Female
  Weight: 79.38 kg

DRUGS (20)
  1. LETAIRIS [Suspect]
     Indication: PULMONARY ARTERIAL HYPERTENSION
     Route: 048
     Dates: start: 20080710
  2. REVATIO [Concomitant]
  3. LORAZEPAM [Concomitant]
  4. CELLCEPT [Concomitant]
  5. COZAAR [Concomitant]
  6. PLAQUENIL [Concomitant]
  7. AMBIEN [Concomitant]
  8. PREDNISONE [Concomitant]
  9. ALBUTEROL [Concomitant]
  10. NAPROXEN [Concomitant]
  11. FLONASE [Concomitant]
  12. ADVAIR 250-50 [Concomitant]
  13. NEXIUM [Concomitant]
  14. CALCIUM [Concomitant]
  15. VITAMIN C [Concomitant]
  16. CELEXA [Concomitant]
  17. DAILY MULTIVITAMIN [Concomitant]
  18. VITAMIN E [Concomitant]
  19. ASPIRIN [Concomitant]
  20. TRAMADOL [Concomitant]

REACTIONS (1)
  - Skin disorder [Unknown]
